FAERS Safety Report 10617922 (Version 1)
Quarter: 2014Q4

REPORT INFORMATION
  Report Type: Spontaneous
  Country: FR (occurrence: FR)
  Receive Date: 20141201
  Receipt Date: 20141201
  Transmission Date: 20150529
  Serious: Yes (Life-Threatening)
  Sender: FDA-Public Use
  Company Number: FR-SA-2014SA163427

PATIENT
  Age: 55 Year
  Sex: Male
  Weight: 62 kg

DRUGS (12)
  1. PLAVIX [Suspect]
     Active Substance: CLOPIDOGREL BISULFATE
     Route: 048
     Dates: start: 20140622, end: 20141017
  2. KEPPRA [Suspect]
     Active Substance: LEVETIRACETAM
     Route: 065
     Dates: start: 20140701, end: 20141006
  3. CORDARONE [Suspect]
     Active Substance: AMIODARONE HYDROCHLORIDE
     Route: 065
     Dates: start: 20140622, end: 20140708
  4. ATARAX [Suspect]
     Active Substance: HYDROXYZINE\HYDROXYZINE HYDROCHLORIDE
     Dosage: STRENGTH: 25 MG
     Route: 048
     Dates: start: 20140710, end: 20141006
  5. ISENTRESS [Suspect]
     Active Substance: RALTEGRAVIR POTASSIUM
     Dosage: STRENGTH: 400 MG
     Route: 048
     Dates: start: 20140710, end: 20141006
  6. KIVEXA [Suspect]
     Active Substance: ABACAVIR SULFATE\LAMIVUDINE
     Route: 048
     Dates: start: 20140710, end: 20140821
  7. BACTRIM [Suspect]
     Active Substance: SULFAMETHOXAZOLE\TRIMETHOPRIM
     Route: 065
     Dates: start: 20140709, end: 20140808
  8. LOVENOX [Suspect]
     Active Substance: ENOXAPARIN SODIUM
     Route: 058
     Dates: start: 20140708, end: 201410
  9. ACETYLSALICYLIC ACID [Suspect]
     Active Substance: ASPIRIN
     Dosage: STRENGTH: 100 MG
     Route: 048
     Dates: start: 20140622
  10. DARUNAVIR [Suspect]
     Active Substance: DARUNAVIR
     Dosage: STRENGTH: 800 MG
     Route: 048
     Dates: start: 20140710, end: 20141006
  11. RITONAVIR. [Suspect]
     Active Substance: RITONAVIR
     Route: 048
     Dates: start: 20140710
  12. INEXIUM [Suspect]
     Active Substance: ESOMEPRAZOLE
     Route: 065
     Dates: start: 20140622, end: 201407

REACTIONS (8)
  - Drug reaction with eosinophilia and systemic symptoms [Not Recovered/Not Resolved]
  - Acute respiratory failure [Recovered/Resolved]
  - Eosinophilia [Recovered/Resolved]
  - Renal tubular disorder [Recovered/Resolved]
  - Systemic inflammatory response syndrome [Recovering/Resolving]
  - Shock [Recovered/Resolved]
  - Cardiac failure [Recovered/Resolved]
  - Dermatitis exfoliative [Unknown]

NARRATIVE: CASE EVENT DATE: 20140803
